FAERS Safety Report 18696997 (Version 1)
Quarter: 2021Q1

REPORT INFORMATION
  Report Type: Spontaneous
  Country: US (occurrence: US)
  Receive Date: 20210104
  Receipt Date: 20210104
  Transmission Date: 20210419
  Serious: Yes (Other)
  Sender: FDA-Public Use
  Company Number: US-PFIZER INC-2016337958

PATIENT
  Age: 42 Year
  Sex: Male
  Weight: 103 kg

DRUGS (20)
  1. LYRICA [Suspect]
     Active Substance: PREGABALIN
     Dosage: 900 MG, DAILY (300 MG IN THE MORNING AND 600 MG IN THE EVENING)
     Dates: start: 20181015
  2. LYRICA [Suspect]
     Active Substance: PREGABALIN
     Dosage: 900 MG, DAILY (300 MG IN THE MORNING AND 600 MG IN THE EVENING)
     Dates: start: 20190402
  3. OXCARBAZEPINE. [Concomitant]
     Active Substance: OXCARBAZEPINE
     Dosage: UNK
  4. LYRICA [Suspect]
     Active Substance: PREGABALIN
     Dosage: UNK
     Dates: start: 20060705
  5. GABAPENTIN. [Concomitant]
     Active Substance: GABAPENTIN
     Dosage: UNK
  6. LYRICA [Suspect]
     Active Substance: PREGABALIN
     Dosage: 900 MG, DAILY [1 CAPSULE IN MORNING AND 2 CAPSULES IN EVENING]
     Route: 048
     Dates: start: 20191007
  7. FELBAMATE. [Concomitant]
     Active Substance: FELBAMATE
     Dosage: UNK
  8. LYRICA [Suspect]
     Active Substance: PREGABALIN
     Dosage: 900 MG, DAILY (300 MG AM AND 600MG PM)
     Route: 048
     Dates: start: 20160408
  9. LYRICA [Suspect]
     Active Substance: PREGABALIN
     Dosage: 900 MG, DAILY (300 MG IN THE MORNING AND 600 MG IN THE EVENING)
     Dates: start: 20181231
  10. LEVETIRACETAM. [Concomitant]
     Active Substance: LEVETIRACETAM
     Indication: EPILEPSY
     Dosage: UNK, 2X/DAY (500 MG?2500 MG)
  11. VALPROIC ACID. [Concomitant]
     Active Substance: VALPROIC ACID
     Dosage: UNK
  12. LYRICA [Suspect]
     Active Substance: PREGABALIN
     Dosage: 300 MG
  13. CARBAMAZEPINE. [Concomitant]
     Active Substance: CARBAMAZEPINE
     Dosage: UNK
  14. PHENYTOIN. [Concomitant]
     Active Substance: PHENYTOIN
     Dosage: 200 MG, 2X/DAY
  15. LACOSAMIDE. [Concomitant]
     Active Substance: LACOSAMIDE
     Dosage: UNK
  16. LYRICA [Suspect]
     Active Substance: PREGABALIN
     Indication: EPILEPSY
     Dosage: 300 MG, 2X/DAY
  17. LYRICA [Suspect]
     Active Substance: PREGABALIN
     Dosage: 900 MG, DAILY (ONE IN THE MORNING AND TWO AT NIGHT)
  18. LAMOTRIGINE. [Concomitant]
     Active Substance: LAMOTRIGINE
     Dosage: UNK
  19. PHENYTOIN. [Concomitant]
     Active Substance: PHENYTOIN
     Indication: EPILEPSY
     Dosage: UNK (100 MG?400 MG AT BEDTIME)
  20. TOPIRAMATE. [Concomitant]
     Active Substance: TOPIRAMATE
     Dosage: UNK

REACTIONS (3)
  - Seizure [Unknown]
  - Prescribed overdose [Unknown]
  - Nervousness [Unknown]

NARRATIVE: CASE EVENT DATE: 20160408
